FAERS Safety Report 8388357-0 (Version None)
Quarter: 2012Q2

REPORT INFORMATION
  Report Type: 
  Country: None (occurrence: None)
  Receive Date: 20120525
  Receipt Date: 20120521
  Transmission Date: 20120825
  Serious: Yes (Other)
  Sender: FDA-Public Use
  Company Number: US-PFIZER INC-2012123010

PATIENT
  Sex: Male

DRUGS (3)
  1. LATANOPROST [Suspect]
     Dosage: UNK
  2. CLARITIN [Suspect]
     Dosage: UNK
  3. TIMOLOL MALEATE [Suspect]
     Dosage: UNK

REACTIONS (4)
  - INTRAOCULAR PRESSURE INCREASED [None]
  - EYE IRRITATION [None]
  - VISUAL IMPAIRMENT [None]
  - EYE PAIN [None]
